FAERS Safety Report 8798894 (Version 3)
Quarter: 2012Q4

REPORT INFORMATION
  Report Type: Report from Study
  Country: US (occurrence: US)
  Receive Date: 20120920
  Receipt Date: 20120928
  Transmission Date: 20130627
  Serious: Yes (Hospitalization)
  Sender: FDA-Public Use
  Company Number: US-JNJFOC-20120907187

PATIENT
  Age: 16 Year
  Sex: Female
  Weight: 47.9 kg

DRUGS (3)
  1. REMICADE [Suspect]
     Indication: INFLAMMATORY BOWEL DISEASE
     Dosage: discontinued prior to study enrollment
     Route: 042
     Dates: start: 20100517
  2. CIMZIA [Concomitant]
     Dates: start: 20120113
  3. NEXIUM [Concomitant]

REACTIONS (2)
  - Crohn^s disease [Recovered/Resolved with Sequelae]
  - Mouth ulceration [Not Recovered/Not Resolved]
